FAERS Safety Report 9494324 (Version 2)
Quarter: 2013Q3

REPORT INFORMATION
  Report Type: Report from Study
  Country: CO (occurrence: CO)
  Receive Date: 20130903
  Receipt Date: 20130903
  Transmission Date: 20140515
  Serious: Yes (Hospitalization)
  Sender: FDA-Public Use
  Company Number: CO-IPSEN BIOPHARMACEUTICALS, INC.-2013-3459

PATIENT
  Age: 61 Year
  Sex: Female

DRUGS (2)
  1. SOMATULINE [Suspect]
     Indication: ACROMEGALY
     Dosage: 120 MG
     Route: 058
     Dates: start: 20091102
  2. LOSARTAN [Concomitant]
     Indication: HYPERTENSION
     Dosage: NOT REPORTED
     Route: 048

REACTIONS (2)
  - Urinary tract infection [Unknown]
  - Headache [Not Recovered/Not Resolved]
